FAERS Safety Report 9172908 (Version 1)
Quarter: 2012Q4

REPORT INFORMATION
  Report Type: 
  Country: US (occurrence: US)
  Receive Date: 20120911
  Receipt Date: 20120911
  Transmission Date: 20130627
  Serious: No
  Sender: FDA-Public Use
  Company Number: US-009507513-1208USA001871

PATIENT

DRUGS (9)
  1. PEG-INTRON [Suspect]
     Dosage: 150 mcg/ 0.5 ml, qw, 4 syr/pk
     Route: 058
  2. KLONOPIN [Concomitant]
  3. PHENERGAN (DIBROMPROPAMIDINE ISETHIONATE (+) PROMETHAZINE) [Concomitant]
  4. PAXIL [Concomitant]
  5. AMLODIPINE [Concomitant]
  6. LISINOPRIL [Concomitant]
  7. METOPROLOL [Concomitant]
     Dosage: ER
  8. OMEGA-3 MARINE TRIGLYCERIDES [Concomitant]
  9. CORTISONE [Concomitant]

REACTIONS (5)
  - Anorectal discomfort [Unknown]
  - Nausea [Unknown]
  - Influenza like illness [Unknown]
  - Dysgeusia [Unknown]
  - Dysgeusia [Unknown]
